FAERS Safety Report 4971686-8 (Version None)
Quarter: 2006Q2

REPORT INFORMATION
  Report Type: 
  Country: None (occurrence: None)
  Receive Date: 20060407
  Receipt Date: 20060328
  Transmission Date: 20061013
  Serious: Yes (Other)
  Sender: FDA-Public Use
  Company Number: 2006011474

PATIENT
  Sex: Female

DRUGS (7)
  1. LIPITOR [Suspect]
     Indication: BLOOD CHOLESTEROL INCREASED
     Dosage: 10 MG (10 MG, 1 IN 1 D), ORAL
     Route: 048
  2. ACCUPRIL [Suspect]
     Indication: RENAL DISORDER
     Dosage: 40 MG (40 MG, 1 IN 1 D), ORAL
     Route: 048
  3. CORTISONE ACETATE [Suspect]
     Indication: PAIN
  4. ACTOS [Suspect]
     Indication: DIABETES MELLITUS
     Dosage: 30 MG (30 MG, 1 IN 1 D)
     Dates: end: 20060101
  5. TOPROL-XL [Concomitant]
  6. SYNTHROID [Concomitant]
  7. FLONASE [Concomitant]

REACTIONS (19)
  - ACTIVITIES OF DAILY LIVING IMPAIRED [None]
  - ARTHRALGIA [None]
  - BLOOD CHOLESTEROL INCREASED [None]
  - BODY HEIGHT DECREASED [None]
  - CHOLELITHIASIS [None]
  - DIABETES MELLITUS [None]
  - DRUG INEFFECTIVE [None]
  - GASTRIC DISORDER [None]
  - GOUT [None]
  - HYPOKINESIA [None]
  - INDURATION [None]
  - JOINT RANGE OF MOTION DECREASED [None]
  - LIMB INJURY [None]
  - LOCALISED OEDEMA [None]
  - MYALGIA [None]
  - PAIN IN EXTREMITY [None]
  - PANCREATIC ENZYMES INCREASED [None]
  - RENAL DISORDER [None]
  - WEIGHT INCREASED [None]
